FAERS Safety Report 7985016-0 (Version None)
Quarter: 2011Q4

REPORT INFORMATION
  Report Type: 
  Country: None (occurrence: None)
  Receive Date: 20111216
  Receipt Date: 20111208
  Transmission Date: 20120403
  Serious: Yes (Hospitalization)
  Sender: FDA-Public Use
  Company Number: US-UCBSA-047449

PATIENT
  Age: 19 Year
  Sex: Male
  Weight: 90 kg

DRUGS (6)
  1. FLEXERIL [Concomitant]
     Indication: MUSCLE SPASMS
     Dates: start: 20111103
  2. DEPAKOTE ER [Concomitant]
     Dosage: AT BED TIME
     Dates: start: 20110308
  3. LACOSAMIDE [Suspect]
     Indication: EPILEPSY
     Route: 048
     Dates: start: 20111025, end: 20111206
  4. SAVELLA [Concomitant]
     Indication: FIBROMYALGIA
     Dates: start: 20111117
  5. BACLOFEN [Concomitant]
     Indication: MUSCLE SPASMS
     Dates: start: 20110130
  6. D2 [Concomitant]
     Indication: HYPOVITAMINOSIS
     Dosage: 50000 UNITS, ONCE A WEEK
     Dates: start: 20110818

REACTIONS (1)
  - CONVULSION [None]
